FAERS Safety Report 5010149-0 (Version None)
Quarter: 2006Q2

REPORT INFORMATION
  Report Type: 
  Country: None (occurrence: None)
  Receive Date: 20060404
  Receipt Date: 20051209
  Transmission Date: 20061013
  Serious: No
  Sender: FDA-Public Use
  Company Number: US200512001856

PATIENT
  Age: 30 Year
  Sex: Female

DRUGS (1)
  1. CYMBALTA [Suspect]
     Indication: DEPRESSION

REACTIONS (5)
  - CRYING [None]
  - DRUG WITHDRAWAL SYNDROME [None]
  - INSOMNIA [None]
  - PANIC ATTACK [None]
  - PERFORMANCE STATUS DECREASED [None]
